FAERS Safety Report 24032462 (Version 1)
Quarter: 2024Q3

REPORT INFORMATION
  Report Type: Spontaneous
  Country: FR (occurrence: FR)
  Receive Date: 20240701
  Receipt Date: 20240701
  Transmission Date: 20241016
  Serious: Yes (Hospitalization)
  Sender: CELLTRION
  Company Number: FR-CELLTRION INC.-2024FR015518

PATIENT

DRUGS (2)
  1. RITUXIMAB [Suspect]
     Active Substance: RITUXIMAB
     Indication: Rheumatoid arthritis
     Dosage: UNK
     Route: 042
     Dates: start: 20221003, end: 20221003
  2. RITUXIMAB [Suspect]
     Active Substance: RITUXIMAB
     Indication: Muscular weakness
     Dosage: UNK
     Route: 042
     Dates: start: 20221025, end: 20221025

REACTIONS (2)
  - Hypersensitivity [Recovered/Resolved]
  - Intentional product use issue [Unknown]

NARRATIVE: CASE EVENT DATE: 20221003
